FAERS Safety Report 10015642 (Version 4)
Quarter: 2014Q2

REPORT INFORMATION
  Report Type: Spontaneous
  Country: JP (occurrence: JP)
  Receive Date: 20140317
  Receipt Date: 20140423
  Transmission Date: 20141212
  Serious: Yes (Death, Life-Threatening, Disabling)
  Sender: FDA-Public Use
  Company Number: JP-PFIZER INC-2014070752

PATIENT
  Age: 79 Year
  Sex: Female
  Weight: 55 kg

DRUGS (8)
  1. ZYVOX [Suspect]
     Indication: MENINGITIS BACTERIAL
     Dosage: 600 MG, 2X/DAY
     Route: 041
     Dates: start: 20131214, end: 20140120
  2. MEROPEN [Concomitant]
     Indication: MENINGITIS BACTERIAL
     Dosage: 2 G, 3X/DAY
     Route: 041
     Dates: start: 20131030, end: 20131203
  3. MEROPEN [Concomitant]
     Dosage: 2 G, 3X/DAY
     Route: 041
     Dates: start: 20131214, end: 20140128
  4. ROCEPHIN [Concomitant]
     Indication: MENINGITIS BACTERIAL
     Dosage: 2 G, 2X/DAY
     Route: 041
     Dates: start: 20131113, end: 20131120
  5. VANCOMYCIN [Concomitant]
     Indication: MENINGITIS BACTERIAL
     Dosage: 0.5 G, 1X/DAY
     Route: 041
     Dates: start: 20131127, end: 20131213
  6. VANCOMYCIN [Concomitant]
     Dosage: 0.5 G, 1X/DAY
     Route: 041
     Dates: start: 20140120, end: 20140128
  7. AMIKACIN [Concomitant]
     Indication: MENINGITIS BACTERIAL
     Dosage: 400 MG, 1X/DAY
     Route: 041
     Dates: start: 20131216, end: 20131216
  8. CANCIDAS [Concomitant]
     Indication: MENINGITIS BACTERIAL
     Dosage: 50 MG, 1X/DAY
     Route: 041
     Dates: start: 20131216, end: 20131227

REACTIONS (4)
  - Meningitis bacterial [Fatal]
  - Condition aggravated [Fatal]
  - Toxic epidermal necrolysis [Not Recovered/Not Resolved]
  - Drug ineffective [Fatal]
